FAERS Safety Report 21229664 (Version 2)
Quarter: 2022Q3

REPORT INFORMATION
  Report Type: Spontaneous
  Country: US (occurrence: US)
  Receive Date: 20220818
  Receipt Date: 20220927
  Transmission Date: 20221026
  Serious: No
  Sender: FDA-Public Use
  Company Number: US-BAYER-2022A112992

PATIENT
  Sex: Female
  Weight: 83.447 kg

DRUGS (6)
  1. MIRENA [Suspect]
     Active Substance: LEVONORGESTREL
     Indication: Intrauterine contraception
     Dosage: 20?G/DAY
     Route: 015
     Dates: start: 20201111, end: 20220512
  2. IBUPROFEN [Concomitant]
     Active Substance: IBUPROFEN
     Dosage: TAKE ONE TABLET BY MOUTH EVERY 6 TO 8 HOURS AS NEEDED FOR PAIN
     Route: 048
  3. ALBUTEROL SULFATE [Concomitant]
     Active Substance: ALBUTEROL SULFATE
  4. AZITHROMYCIN [Concomitant]
     Active Substance: AZITHROMYCIN
     Dosage: TAKE 2 TABLETS BY MOUTH ONCE DAILY
     Route: 048
  5. METRONIDAZOLE [Concomitant]
     Active Substance: METRONIDAZOLE
  6. PHEXXI [Concomitant]
     Active Substance: CITRIC ACID MONOHYDRATE\LACTIC ACID, L-\POTASSIUM BITARTRATE
     Dosage: 1.8 %-1 %-0.4 % VAGLNAL GAL

REACTIONS (3)
  - Motion sickness [None]
  - Headache [None]
  - Device issue [None]
